FAERS Safety Report 4562519-2 (Version None)
Quarter: 2005Q1

REPORT INFORMATION
  Report Type: 
  Country: None (occurrence: None)
  Receive Date: 20050124
  Receipt Date: 20050110
  Transmission Date: 20050727
  Serious: Yes (Death)
  Sender: FDA-Public Use
  Company Number: S04-USA-08058-01

PATIENT
  Age: 15 Year
  Sex: Female

DRUGS (2)
  1. CELEXA [Suspect]
     Indication: EMOTIONAL DISORDER
     Dosage: 20 MG QD PO
     Route: 048
     Dates: start: 20040212, end: 20040701
  2. CELEXA [Suspect]
     Indication: EMOTIONAL DISORDER
     Dosage: 40 MG QD PO
     Route: 048
     Dates: start: 20040702, end: 20040716

REACTIONS (5)
  - COMPLETED SUICIDE [None]
  - EMOTIONAL DISORDER [None]
  - INSOMNIA [None]
  - INTENTIONAL SELF-INJURY [None]
  - SELF MUTILATION [None]
